FAERS Safety Report 7590773 (Version 7)
Quarter: 2013Q3

REPORT INFORMATION
  Report Type: Spontaneous
  Country: JP (occurrence: JP)
  Receive Date: 20100917
  Receipt Date: 20130705
  Transmission Date: 20140515
  Serious: Yes (Hospitalization)
  Sender: FDA-Public Use
  Company Number: PHHY2010JP59742

PATIENT
  Age: 64 Year
  Sex: Male
  Weight: 60 kg

DRUGS (9)
  1. AFINITOR [Suspect]
     Indication: METASTATIC RENAL CELL CARCINOMA
     Dosage: 10 MG, DAILY
     Route: 048
     Dates: start: 20100810, end: 20100906
  2. TEGRETOL [Suspect]
     Indication: METASTATIC RENAL CELL CARCINOMA
     Dosage: 300 MG, DAILY
     Route: 048
     Dates: start: 20100303, end: 20100405
  3. RINDERON [Concomitant]
     Route: 048
  4. GASTER [Concomitant]
     Route: 048
  5. NOVOLIN [Concomitant]
     Dosage: 58 IU
     Route: 058
     Dates: start: 201004
  6. PREDNISOLONE [Concomitant]
     Dosage: 5 MG
     Route: 048
     Dates: start: 201004
  7. AZUNOL [Concomitant]
     Indication: PROPHYLAXIS
     Route: 048
     Dates: start: 20100809, end: 20100906
  8. KENALOG [Concomitant]
     Indication: PROPHYLAXIS
     Route: 048
     Dates: start: 20100809, end: 20100906
  9. STEROIDS NOS [Concomitant]

REACTIONS (6)
  - Interstitial lung disease [Recovered/Resolved]
  - Pyrexia [Unknown]
  - Dyspnoea [Unknown]
  - Toxic skin eruption [Recovered/Resolved]
  - Skin disorder [Unknown]
  - Herpes zoster [Recovering/Resolving]
